FAERS Safety Report 25945518 (Version 1)
Quarter: 2025Q4

REPORT INFORMATION
  Report Type: Report from Study
  Country: US (occurrence: US)
  Receive Date: 20251021
  Receipt Date: 20251021
  Transmission Date: 20260119
  Serious: Yes (Other)
  Sender: MYLAN
  Company Number: US-MYLANLABS-2025M1088444

PATIENT
  Sex: Female

DRUGS (8)
  1. GABAPENTIN [Suspect]
     Active Substance: GABAPENTIN
     Indication: Product used for unknown indication
     Dosage: UNK
  2. GABAPENTIN [Suspect]
     Active Substance: GABAPENTIN
     Dosage: UNK
     Route: 065
  3. GABAPENTIN [Suspect]
     Active Substance: GABAPENTIN
     Dosage: UNK
     Route: 065
  4. GABAPENTIN [Suspect]
     Active Substance: GABAPENTIN
     Dosage: UNK
  5. LORBRENA [Suspect]
     Active Substance: LORLATINIB
     Indication: Product used for unknown indication
     Dosage: 50 MILLIGRAM, QD (DAILY)
  6. LORBRENA [Suspect]
     Active Substance: LORLATINIB
     Dosage: 50 MILLIGRAM, QD (DAILY)
     Route: 065
  7. LORBRENA [Suspect]
     Active Substance: LORLATINIB
     Dosage: 50 MILLIGRAM, QD (DAILY)
     Route: 065
  8. LORBRENA [Suspect]
     Active Substance: LORLATINIB
     Dosage: 50 MILLIGRAM, QD (DAILY)

REACTIONS (2)
  - Neuropathy peripheral [Unknown]
  - Condition aggravated [Unknown]
